FAERS Safety Report 6094163-2 (Version None)
Quarter: 2009Q1

REPORT INFORMATION
  Report Type: 
  Country: None (occurrence: None)
  Receive Date: 20090226
  Receipt Date: 20090213
  Transmission Date: 20090719
  Serious: Yes (Hospitalization)
  Sender: FDA-Public Use
  Company Number: TR-MERCK-0902TUR00009

PATIENT
  Age: 6 Day

DRUGS (2)
  1. PRIMAXIN [Suspect]
     Indication: INFECTION
     Route: 041
  2. GENTAMICIN [Suspect]
     Route: 065

REACTIONS (2)
  - SERRATIA INFECTION [None]
  - TREATMENT FAILURE [None]
